FAERS Safety Report 23249907 (Version 1)
Quarter: 2023Q4

REPORT INFORMATION
  Report Type: Spontaneous
  Country: CN (occurrence: None)
  Receive Date: 20231201
  Receipt Date: 20231201
  Transmission Date: 20240109
  Serious: Yes (Other)
  Sender: FDA-Public Use
  Company Number: 2023A269240

PATIENT
  Age: 15340 Day
  Sex: Female
  Weight: 50 kg

DRUGS (7)
  1. ESOMEPRAZOLE MAGNESIUM [Suspect]
     Active Substance: ESOMEPRAZOLE\ESOMEPRAZOLE MAGNESIUM\ESOMEPRAZOLE MAGNESIUM DIHYDRATE
     Indication: Helicobacter infection
     Route: 048
     Dates: start: 20231030, end: 20231109
  2. AMOXICILLIN [Suspect]
     Active Substance: AMOXICILLIN
     Indication: Helicobacter infection
     Route: 048
     Dates: start: 20231030, end: 20231109
  3. FURAZOLIDONE [Suspect]
     Active Substance: FURAZOLIDONE
     Indication: Helicobacter infection
     Route: 048
     Dates: start: 20231030, end: 20231109
  4. BISMUTH [Suspect]
     Active Substance: BISMUTH
     Indication: Helicobacter infection
     Route: 048
     Dates: start: 20231030, end: 20231109
  5. METHYLPREDNISOLONE SODIUM SUCCINATE [Concomitant]
     Active Substance: METHYLPREDNISOLONE SODIUM SUCCINATE
     Route: 058
  6. SODIUM CHLORIDE [Concomitant]
     Active Substance: SODIUM CHLORIDE
     Route: 042
  7. CETIRIZINE HYDROCHLORIDE [Concomitant]
     Active Substance: CETIRIZINE HYDROCHLORIDE
     Route: 048

REACTIONS (4)
  - Rash [Recovering/Resolving]
  - Pruritus [Recovering/Resolving]
  - Papule [Unknown]
  - Skin plaque [Unknown]

NARRATIVE: CASE EVENT DATE: 20231109
